FAERS Safety Report 9550847 (Version 3)
Quarter: 2016Q3

REPORT INFORMATION
  Report Type: Spontaneous
  Country: US (occurrence: US)
  Receive Date: 20130924
  Receipt Date: 20160701
  Transmission Date: 20161109
  Serious: Yes (Other)
  Sender: FDA-Public Use
  Company Number: US-SANOFI-AVENTIS-2013SA039533

PATIENT
  Age: 56 Year
  Sex: Female
  Weight: 42.6 kg

DRUGS (17)
  1. AUBAGIO [Suspect]
     Active Substance: TERIFLUNOMIDE
     Indication: MULTIPLE SCLEROSIS
     Route: 048
     Dates: start: 20130314
  2. NEXIUM [Concomitant]
     Active Substance: ESOMEPRAZOLE MAGNESIUM
  3. AMANTADINE [Concomitant]
     Active Substance: AMANTADINE
  4. GABAPENTIN. [Concomitant]
     Active Substance: GABAPENTIN
  5. PREMARIN [Concomitant]
     Active Substance: ESTROGENS, CONJUGATED
  6. MELOXICAM. [Concomitant]
     Active Substance: MELOXICAM
  7. METOPROLOL. [Concomitant]
     Active Substance: METOPROLOL
  8. BUTALBITAL AND ACETAMINOPHEN [Concomitant]
     Active Substance: ACETAMINOPHEN\BUTALBITAL
  9. BREO ELLIPTA [Concomitant]
     Active Substance: FLUTICASONE FUROATE\VILANTEROL TRIFENATATE
  10. AUBAGIO [Suspect]
     Active Substance: TERIFLUNOMIDE
     Indication: MULTIPLE SCLEROSIS
     Route: 048
     Dates: start: 20130314
  11. CAMBIA [Concomitant]
     Active Substance: DICLOFENAC POTASSIUM
  12. AUBAGIO [Suspect]
     Active Substance: TERIFLUNOMIDE
     Indication: MULTIPLE SCLEROSIS
     Route: 048
     Dates: start: 20130314
  13. TRAMADOL. [Concomitant]
     Active Substance: TRAMADOL
  14. VENTOLIN [Concomitant]
     Active Substance: ALBUTEROL SULFATE
  15. AUBAGIO [Suspect]
     Active Substance: TERIFLUNOMIDE
     Indication: MULTIPLE SCLEROSIS
     Route: 048
     Dates: start: 20130314
  16. AUBAGIO [Suspect]
     Active Substance: TERIFLUNOMIDE
     Indication: MULTIPLE SCLEROSIS
     Route: 048
     Dates: start: 20130314
  17. TOPIRAMATE. [Concomitant]
     Active Substance: TOPIRAMATE

REACTIONS (15)
  - Rheumatoid arthritis [Unknown]
  - Influenza like illness [Not Recovered/Not Resolved]
  - Frequent bowel movements [Not Recovered/Not Resolved]
  - Anal incontinence [Not Recovered/Not Resolved]
  - Mean cell volume increased [Unknown]
  - Pain in extremity [Not Recovered/Not Resolved]
  - Hair texture abnormal [Not Recovered/Not Resolved]
  - White blood cell count decreased [Unknown]
  - Pain [Not Recovered/Not Resolved]
  - Diarrhoea [Not Recovered/Not Resolved]
  - Blood chloride increased [Unknown]
  - Fatigue [Not Recovered/Not Resolved]
  - Macrocytosis [Unknown]
  - Muscular weakness [Not Recovered/Not Resolved]
  - Alopecia [Not Recovered/Not Resolved]

NARRATIVE: CASE EVENT DATE: 201303
